FAERS Safety Report 6276343-6 (Version None)
Quarter: 2009Q3

REPORT INFORMATION
  Report Type: 
  Country: None (occurrence: None)
  Receive Date: 20090722
  Receipt Date: 20090714
  Transmission Date: 20100115
  Serious: Yes (Death, Other)
  Sender: FDA-Public Use
  Company Number: US-ROCHE-644790

PATIENT
  Age: 27 Year
  Sex: Male

DRUGS (5)
  1. MYCOPHENOLATE MOFETIL [Suspect]
     Route: 065
  2. PROGRAF [Suspect]
     Route: 065
  3. PROGRAF [Suspect]
     Route: 065
  4. ATGAM [Suspect]
     Route: 065
  5. PREDNISONE [Suspect]
     Route: 065

REACTIONS (3)
  - EPSTEIN-BARR VIRUS ASSOCIATED LYMPHOPROLIFERATIVE DISORDER [None]
  - SEPSIS [None]
  - TRANSPLANT REJECTION [None]
